FAERS Safety Report 9406377 (Version 1)
Quarter: 2013Q3

REPORT INFORMATION
  Report Type: Spontaneous
  Country: ES (occurrence: ES)
  Receive Date: 20130718
  Receipt Date: 20130718
  Transmission Date: 20140515
  Serious: Yes (Hospitalization)
  Sender: FDA-Public Use
  Company Number: ES-SANTEN INC.-INC-13-000179

PATIENT
  Age: 91 Year
  Sex: Male

DRUGS (1)
  1. TIMOSAN [Suspect]
     Indication: GLAUCOMA
     Route: 061
     Dates: start: 2005, end: 20120519

REACTIONS (6)
  - Atrial fibrillation [Recovered/Resolved]
  - Bradycardia [Recovered/Resolved]
  - Blindness [Unknown]
  - Deafness [Unknown]
  - Presyncope [Recovered/Resolved]
  - Malaise [Unknown]
